FAERS Safety Report 8181506-9 (Version None)
Quarter: 2012Q1

REPORT INFORMATION
  Report Type: 
  Country: None (occurrence: None)
  Receive Date: 20120302
  Receipt Date: 20120223
  Transmission Date: 20120608
  Serious: Yes (Other)
  Sender: FDA-Public Use
  Company Number: US-PFIZER INC-2012049679

PATIENT
  Sex: Female

DRUGS (3)
  1. LIPITOR [Suspect]
     Dosage: UNK
  2. EFFEXOR XR [Suspect]
     Dosage: UNK
  3. CELEBREX [Suspect]
     Dosage: UNK

REACTIONS (8)
  - SPINAL DISORDER [None]
  - GAIT DISTURBANCE [None]
  - VEIN DISORDER [None]
  - NAUSEA [None]
  - EMOTIONAL DISORDER [None]
  - NERVE INJURY [None]
  - CEREBROVASCULAR ACCIDENT [None]
  - PAIN [None]
